FAERS Safety Report 10219377 (Version 2)
Quarter: 2014Q3

REPORT INFORMATION
  Report Type: Spontaneous
  Country: ES (occurrence: None)
  Receive Date: 20140603
  Receipt Date: 20140829
  Transmission Date: 20150326
  Serious: Yes (Other)
  Sender: FDA-Public Use
  Company Number: 2014ES003308

PATIENT
  Age: 67 Year
  Sex: Male
  Weight: 79 kg

DRUGS (3)
  1. PONATINIB (AP24534) TABLET [Suspect]
     Active Substance: PONATINIB
     Indication: CHRONIC MYELOID LEUKAEMIA
     Route: 048
     Dates: start: 20121026
  2. LORAZEPAM (LORAZEPAM) [Concomitant]
     Active Substance: LORAZEPAM
  3. BALZAK PLUS (AMLODIPINE BESILATE, HYDROCHLOROTHIAZIDE, OLMESARTAN MEDOXOMIL) [Concomitant]

REACTIONS (7)
  - Fatigue [None]
  - Lipase increased [None]
  - Renal impairment [None]
  - Peripheral arterial occlusive disease [None]
  - Blood creatinine increased [None]
  - Amylase increased [None]
  - Pain [None]

NARRATIVE: CASE EVENT DATE: 20140123
